FAERS Safety Report 19401049 (Version 1)
Quarter: 2021Q2

REPORT INFORMATION
  Report Type: Report from Study
  Country: US (occurrence: US)
  Receive Date: 20210610
  Receipt Date: 20210610
  Transmission Date: 20210717
  Serious: Yes (Death, Hospitalization)
  Sender: FDA-Public Use
  Company Number: US-BAUSCH-BL-2021-020133

PATIENT
  Age: 72 Year
  Sex: Male
  Weight: 88.98 kg

DRUGS (2)
  1. XIFAXAN [Suspect]
     Active Substance: RIFAXIMIN
     Indication: NONALCOHOLIC FATTY LIVER DISEASE
     Route: 048
     Dates: start: 2020
  2. LACTULOSE. [Concomitant]
     Active Substance: LACTULOSE
     Indication: PRODUCT USED FOR UNKNOWN INDICATION
     Route: 048

REACTIONS (7)
  - Fall [Unknown]
  - General physical health deterioration [Unknown]
  - Palliative care [Unknown]
  - Upper limb fracture [Unknown]
  - Decubitus ulcer [Unknown]
  - Death [Fatal]
  - Hip fracture [Unknown]

NARRATIVE: CASE EVENT DATE: 2020
